FAERS Safety Report 8887556 (Version 1)
Quarter: 2012Q4

REPORT INFORMATION
  Report Type: Spontaneous
  Country: KR (occurrence: None)
  Receive Date: 20121031
  Receipt Date: 20121031
  Transmission Date: 20130627
  Serious: Yes (Other)
  Sender: FDA-Public Use
  Company Number: FK201203179

PATIENT
  Age: 49 Year
  Sex: Male

DRUGS (1)
  1. FLUOROURACIL [Suspect]
     Route: 042

REACTIONS (1)
  - Encephalopathy [None]
